FAERS Safety Report 19242721 (Version 1)
Quarter: 2021Q2

REPORT INFORMATION
  Report Type: Spontaneous
  Country: KR (occurrence: KR)
  Receive Date: 20210510
  Receipt Date: 20210510
  Transmission Date: 20210717
  Serious: Yes (Other)
  Sender: FDA-Public Use
  Company Number: KR-CELLTRION INC.-2021KR006154

PATIENT

DRUGS (3)
  1. VITAMIN D [Concomitant]
     Active Substance: VITAMIN D NOS
     Dosage: 1BTL, WEEKLY
     Dates: start: 2020
  2. ASACOL [Concomitant]
     Active Substance: MESALAMINE
     Dosage: 3TAB BID
     Dates: start: 2020
  3. REMSIMA [Suspect]
     Active Substance: INFLIXIMAB
     Indication: CROHN^S DISEASE
     Dosage: 120 MG
     Route: 058
     Dates: start: 202102

REACTIONS (3)
  - Injection site pain [Recovered/Resolved]
  - Crohn^s disease [Unknown]
  - Injection site bruising [Recovered/Resolved]

NARRATIVE: CASE EVENT DATE: 20210421
